FAERS Safety Report 10617437 (Version 2)
Quarter: 2014Q4

REPORT INFORMATION
  Report Type: Spontaneous
  Country: AU (occurrence: AU)
  Receive Date: 20141201
  Receipt Date: 20141224
  Transmission Date: 20150529
  Serious: Yes (Disabling, Other)
  Sender: FDA-Public Use
  Company Number: AU-JNJFOC-20141116481

PATIENT
  Age: 47 Year
  Sex: Female
  Weight: 70 kg

DRUGS (1)
  1. REMICADE [Suspect]
     Active Substance: INFLIXIMAB
     Indication: PSORIASIS
     Route: 042
     Dates: start: 20140212, end: 20140904

REACTIONS (4)
  - Antinuclear antibody increased [Not Recovered/Not Resolved]
  - Lupus-like syndrome [Not Recovered/Not Resolved]
  - Arthralgia [Not Recovered/Not Resolved]
  - C-reactive protein decreased [Not Recovered/Not Resolved]

NARRATIVE: CASE EVENT DATE: 201409
